FAERS Safety Report 6359191-8 (Version None)
Quarter: 2009Q3

REPORT INFORMATION
  Report Type: 
  Country: None (occurrence: None)
  Receive Date: 20090917
  Receipt Date: 20090914
  Transmission Date: 20100115
  Serious: Yes (Other)
  Sender: FDA-Public Use
  Company Number: US-JNJFOC-20090703235

PATIENT
  Sex: Female
  Weight: 72.58 kg

DRUGS (6)
  1. FENTANYL TRANSDERMAL SYSTEM [Suspect]
     Indication: BACK INJURY
     Route: 062
  2. LYRICA [Suspect]
     Indication: MYALGIA
     Route: 048
  3. BACLOFEN [Suspect]
     Indication: MYALGIA
     Route: 048
  4. LORAZEPAM [Suspect]
     Dosage: AT NIGHT
     Route: 048
  5. LORAZEPAM [Suspect]
     Indication: MYALGIA
     Route: 048
  6. METOPROLOL TARTRATE [Concomitant]
     Indication: HYPERTENSION
     Route: 048

REACTIONS (9)
  - ABDOMINAL DISCOMFORT [None]
  - DEVICE ADHESION ISSUE [None]
  - FALL [None]
  - MULTIPLE SCLEROSIS [None]
  - MYALGIA [None]
  - PAIN [None]
  - SLEEP DISORDER [None]
  - URINARY INCONTINENCE [None]
  - WRONG TECHNIQUE IN DRUG USAGE PROCESS [None]
